FAERS Safety Report 10015942 (Version 1)
Quarter: 2014Q1

REPORT INFORMATION
  Report Type: Spontaneous
  Country: RU (occurrence: RU)
  Receive Date: 20140317
  Receipt Date: 20140317
  Transmission Date: 20141002
  Serious: Yes (Other)
  Sender: FDA-Public Use
  Company Number: RU-BAYER-2014-033719

PATIENT
  Age: 30 Year
  Sex: Female

DRUGS (1)
  1. YAZ PLUS [Suspect]
     Indication: CONTRACEPTION
     Dosage: 1 DF, QD
     Route: 048
     Dates: start: 201304, end: 20140304

REACTIONS (2)
  - Metrorrhagia [None]
  - Salpingo-oophoritis [None]
